FAERS Safety Report 8955655 (Version 2)
Quarter: 2013Q1

REPORT INFORMATION
  Report Type: Report from Study
  Country: PL (occurrence: PL)
  Receive Date: 20121207
  Receipt Date: 20130117
  Transmission Date: 20140127
  Serious: Yes (Other)
  Sender: FDA-Public Use
  Company Number: PL-ROCHE-1163443

PATIENT
  Age: 59 Year
  Sex: Female

DRUGS (2)
  1. HERCEPTIN [Suspect]
     Indication: NEOPLASM MALIGNANT
     Route: 065
     Dates: start: 201003
  2. PACLITAXEL [Concomitant]

REACTIONS (5)
  - Bone marrow disorder [Unknown]
  - Pneumonia [Unknown]
  - Metastases to central nervous system [Unknown]
  - Headache [Unknown]
  - Confusional state [Unknown]
